FAERS Safety Report 14278435 (Version 1)
Quarter: 2017Q4

REPORT INFORMATION
  Report Type: Spontaneous
  Country: IT (occurrence: IT)
  Receive Date: 20171211
  Receipt Date: 20171211
  Transmission Date: 20180321
  Serious: Yes (Hospitalization, Other)
  Sender: FDA-Public Use
  Company Number: IT-OTSUKA-2016_010992

PATIENT
  Age: 65 Year
  Sex: Female

DRUGS (1)
  1. ABILIFY [Suspect]
     Active Substance: ARIPIPRAZOLE
     Indication: DEPRESSION
     Dosage: 5 MG, QD
     Route: 048
     Dates: start: 20160415, end: 20160509

REACTIONS (7)
  - Pyrexia [Unknown]
  - Rhabdomyolysis [Recovered/Resolved]
  - Asthenia [Recovered/Resolved]
  - Bronchitis [Unknown]
  - Respiratory tract inflammation [Unknown]
  - Off label use [Unknown]
  - Productive cough [Unknown]

NARRATIVE: CASE EVENT DATE: 20160505
